FAERS Safety Report 17098629 (Version 1)
Quarter: 2019Q4

REPORT INFORMATION
  Report Type: Spontaneous
  Country: GB (occurrence: GB)
  Receive Date: 20191202
  Receipt Date: 20191202
  Transmission Date: 20200122
  Serious: Yes (Hospitalization)
  Sender: FDA-Public Use
  Company Number: GB-TEVA-2019-GB-1144159

PATIENT
  Sex: Male

DRUGS (6)
  1. LANSOPRAZOLE,CAPSULES 15 MG [Suspect]
     Active Substance: LANSOPRAZOLE
     Route: 065
  2. DUTASTERIDE. [Suspect]
     Active Substance: DUTASTERIDE
     Route: 065
  3. ALFUZOSIN HCL, ER TABLETS, 10 MG [Suspect]
     Active Substance: ALFUZOSIN HYDROCHLORIDE
     Route: 065
  4. BISOPROLOL [Suspect]
     Active Substance: BISOPROLOL
     Route: 065
  5. TRAMADOL 100MG [Suspect]
     Active Substance: TRAMADOL
     Route: 065
  6. TRAMADOL HYDROCHLORIDE CAPSULES 50 MG [Suspect]
     Active Substance: TRAMADOL HYDROCHLORIDE
     Route: 065

REACTIONS (3)
  - Malaise [Unknown]
  - Drug dispensed to wrong patient [Unknown]
  - Product administration error [Unknown]
